FAERS Safety Report 25030489 (Version 1)
Quarter: 2025Q1

REPORT INFORMATION
  Report Type: Report from Study
  Country: US (occurrence: US)
  Receive Date: 20250303
  Receipt Date: 20250303
  Transmission Date: 20250408
  Serious: Yes (Other)
  Sender: AMGEN
  Company Number: US-AMGEN-USASL2025039176

PATIENT
  Age: 47 Year
  Sex: Male

DRUGS (2)
  1. KRYSTEXXA [Suspect]
     Active Substance: PEGLOTICASE
     Indication: Gouty tophus
     Dosage: 8 MILLIGRAM, Q2WK (EVERY 14 DAYS), FIRST INFUSION
     Route: 040
     Dates: start: 20241115
  2. KRYSTEXXA [Suspect]
     Active Substance: PEGLOTICASE
     Dosage: 8 MILLIGRAM, Q2WK (EVERY 14 DAYS), LAST INFUSION
     Route: 040
     Dates: start: 20250221, end: 20250221

REACTIONS (4)
  - Loss of consciousness [Recovered/Resolved]
  - Pain [Recovered/Resolved]
  - Malaise [Recovered/Resolved]
  - Blood uric acid abnormal [Recovered/Resolved]
